FAERS Safety Report 13078948 (Version 1)
Quarter: 2017Q1

REPORT INFORMATION
  Report Type: Report from Study
  Country: FR (occurrence: FR)
  Receive Date: 20170102
  Receipt Date: 20170102
  Transmission Date: 20170428
  Serious: Yes (Hospitalization)
  Sender: FDA-Public Use
  Company Number: PHHO2016FR019103

PATIENT
  Age: 71 Year
  Sex: Male
  Weight: 76 kg

DRUGS (20)
  1. AMLOR [Concomitant]
     Active Substance: AMLODIPINE BESYLATE
     Indication: HYPERTENSION
     Dosage: UNK
     Route: 065
     Dates: start: 20160908
  2. FUROSEMIDE. [Concomitant]
     Active Substance: FUROSEMIDE
     Indication: FLUID OVERLOAD
     Dosage: UNK
     Route: 065
     Dates: start: 201609
  3. BACTRIM [Concomitant]
     Active Substance: SULFAMETHOXAZOLE\TRIMETHOPRIM
     Indication: INFECTION PROPHYLAXIS
     Dosage: UNK
     Route: 065
     Dates: start: 201609
  4. GAVISCON [Concomitant]
     Active Substance: ALUMINUM HYDROXIDE\MAGNESIUM CARBONATE
     Indication: PROPHYLAXIS
     Dosage: UNK
     Route: 065
     Dates: start: 201609
  5. CORTANCYL [Concomitant]
     Active Substance: PREDNISONE
     Indication: IMMUNOSUPPRESSANT DRUG THERAPY
     Dosage: 10 MG, QD
     Route: 065
     Dates: start: 201609
  6. URAPIDIL [Concomitant]
     Active Substance: URAPIDIL
     Indication: HYPERTENSION
     Dosage: UNK
     Route: 065
     Dates: start: 201609
  7. ATORVASTATIN [Concomitant]
     Active Substance: ATORVASTATIN
     Indication: HYPERTENSION
     Dosage: UNK
     Route: 065
     Dates: start: 201609
  8. NEO-MERCAZOLE [Concomitant]
     Active Substance: CARBIMAZOLE
     Indication: HYPERTHYROIDISM
     Route: 065
  9. BISOPROLOL [Concomitant]
     Active Substance: BISOPROLOL
     Indication: HYPERTENSION
     Dosage: UNK
     Route: 065
     Dates: start: 201609
  10. PANTOPRAZOL [Concomitant]
     Active Substance: PANTOPRAZOLE SODIUM
     Indication: PROPHYLAXIS
     Dosage: UNK
     Route: 065
     Dates: start: 201609
  11. PROGRAF [Concomitant]
     Active Substance: TACROLIMUS\TACROLIMUS ANHYDROUS
     Indication: IMMUNOSUPPRESSANT DRUG THERAPY
     Dosage: 12 UNK, UNK
     Route: 065
     Dates: start: 20160904
  12. COUMADIN [Concomitant]
     Active Substance: WARFARIN SODIUM
     Indication: CARDIOMYOPATHY
     Dosage: UNK
     Route: 065
     Dates: start: 20160923
  13. KARDEGIC [Concomitant]
     Active Substance: ASPIRIN LYSINE
     Indication: PLATELET AGGREGATION INHIBITION
     Dosage: UNK
     Route: 065
  14. FOLINIC ACID [Concomitant]
     Active Substance: LEUCOVORIN
     Indication: ANAEMIA PROPHYLAXIS
     Dosage: UNK
     Route: 065
     Dates: start: 201609
  15. PROGRAF [Concomitant]
     Active Substance: TACROLIMUS\TACROLIMUS ANHYDROUS
     Dosage: 7 MG, QD
     Route: 065
  16. NULOJIX [Concomitant]
     Active Substance: BELATACEPT
     Indication: PRODUCT USED FOR UNKNOWN INDICATION
     Dosage: 36 MG, QD
     Route: 065
     Dates: start: 20161021
  17. LANTUS [Concomitant]
     Active Substance: INSULIN GLARGINE
     Indication: DIABETES MELLITUS
     Dosage: UNK
     Route: 065
     Dates: start: 201609
  18. CERTICAN [Suspect]
     Active Substance: EVEROLIMUS
     Indication: RENAL TRANSPLANT
     Dosage: 6.5 MG, UNK
     Route: 048
     Dates: start: 201609, end: 20161014
  19. CELLCEPT [Concomitant]
     Active Substance: MYCOPHENOLATE MOFETIL\MYCOPHENOLATE MOFETIL HYDROCHLORIDE
     Indication: IMMUNOSUPPRESSANT DRUG THERAPY
     Dosage: 750 MG, BID
     Route: 065
     Dates: start: 20161014
  20. LEDERFOLIN [Concomitant]
     Active Substance: LEUCOVORIN CALCIUM
     Indication: ANAEMIA PROPHYLAXIS
     Dosage: UNK
     Route: 065
     Dates: start: 201609

REACTIONS (5)
  - Lung disorder [Recovering/Resolving]
  - Nephropathy toxic [Recovering/Resolving]
  - Acute respiratory distress syndrome [Not Recovered/Not Resolved]
  - Pleurisy [Recovered/Resolved]
  - Atrial fibrillation [Not Recovered/Not Resolved]

NARRATIVE: CASE EVENT DATE: 20160904
